FAERS Safety Report 19200191 (Version 1)
Quarter: 2021Q2

REPORT INFORMATION
  Report Type: Spontaneous
  Country: US (occurrence: US)
  Receive Date: 20210430
  Receipt Date: 20210430
  Transmission Date: 20210717
  Serious: Yes (Hospitalization)
  Sender: FDA-Public Use
  Company Number: None

PATIENT
  Age: 66 Year
  Sex: Male
  Weight: 92.3 kg

DRUGS (3)
  1. ABIRATERONE ACETATE. [Suspect]
     Active Substance: ABIRATERONE ACETATE
     Dates: end: 20200714
  2. PREDNISONE. [Suspect]
     Active Substance: PREDNISONE
     Dates: end: 20200715
  3. CABAZITAXEL [Suspect]
     Active Substance: CABAZITAXEL
     Dates: end: 20191209

REACTIONS (3)
  - Melaena [None]
  - Nausea [None]
  - Gastric ulcer [None]

NARRATIVE: CASE EVENT DATE: 20200715
